FAERS Safety Report 21317214 (Version 1)
Quarter: 2022Q3

REPORT INFORMATION
  Report Type: Spontaneous
  Country: US (occurrence: US)
  Receive Date: 20220911
  Receipt Date: 20220911
  Transmission Date: 20221026
  Serious: No
  Sender: FDA-Public Use
  Company Number: US-SA-SAC20220823002267

PATIENT
  Sex: Female
  Weight: 83.23 kg

DRUGS (47)
  1. DUPIXENT [Suspect]
     Active Substance: DUPILUMAB
     Indication: Asthma
     Dosage: 300MG,QOW
     Route: 058
  2. GLUCOSAMINE CHONDROITIN [CHONDROITIN SULFATE;GLUCOSAMINE] [Concomitant]
  3. VITAMIN D3 [Concomitant]
     Active Substance: CHOLECALCIFEROL
  4. CALCIUM [Concomitant]
     Active Substance: CALCIUM
  5. CYANOCOBALAMIN [Concomitant]
     Active Substance: CYANOCOBALAMIN
  6. VITAMIN B6 [Concomitant]
     Active Substance: PYRIDOXINE HYDROCHLORIDE
  7. NAFTIN [Concomitant]
     Active Substance: NAFTIFINE HYDROCHLORIDE
  8. CICLOPIROX [Concomitant]
     Active Substance: CICLOPIROX
  9. HYDROCORTISONE [Concomitant]
     Active Substance: HYDROCORTISONE
  10. EPIPEN [Concomitant]
     Active Substance: EPINEPHRINE
  11. VELTIN [Concomitant]
     Active Substance: CLINDAMYCIN PHOSPHATE\TRETINOIN
     Dosage: 1.2-0.025%
  12. DAPSONE [Concomitant]
     Active Substance: DAPSONE
  13. VOLTAREN ARTHRITIS PAIN [Concomitant]
     Active Substance: DICLOFENAC SODIUM
  14. CHLORHEXIDINE GLUCONATE [Concomitant]
     Active Substance: CHLORHEXIDINE GLUCONATE
  15. NYSTATIN [Concomitant]
     Active Substance: NYSTATIN
  16. EZETIMIBE [Concomitant]
     Active Substance: EZETIMIBE
  17. METFORMIN HYDROCHLORIDE [Concomitant]
     Active Substance: METFORMIN HYDROCHLORIDE
  18. SIMPLY SALINE [Concomitant]
  19. ALLEGRA ALLERGY [Concomitant]
     Active Substance: FEXOFENADINE HYDROCHLORIDE
  20. ALBUTEROL SULFATE [Concomitant]
     Active Substance: ALBUTEROL SULFATE
  21. MONTELUKAST SODIUM [Concomitant]
     Active Substance: MONTELUKAST SODIUM
  22. ARNUITY ELLIPTA [Concomitant]
     Active Substance: FLUTICASONE FUROATE
  23. INCRUSE ELLIPTA [Concomitant]
     Active Substance: UMECLIDINIUM BROMIDE
  24. VENTOLIN HFA [Concomitant]
     Active Substance: ALBUTEROL SULFATE
  25. AZELASTINE HYDROCHLORIDE [Concomitant]
     Active Substance: AZELASTINE HYDROCHLORIDE
  26. FLUTICASONE PROPIONATE [Concomitant]
     Active Substance: FLUTICASONE PROPIONATE
  27. BUSPIRONE HCL [Concomitant]
     Active Substance: BUSPIRONE HYDROCHLORIDE
  28. DEOLIN [THEOPHYLLINE] [Concomitant]
  29. DEXTROSE [Concomitant]
     Active Substance: DEXTROSE
  30. DULOXETINE HYDROCHLORIDE [Concomitant]
     Active Substance: DULOXETINE HYDROCHLORIDE
  31. METHYLPHENIDATE HYDROCHLORIDE [Concomitant]
     Active Substance: METHYLPHENIDATE HYDROCHLORIDE
  32. METHYLPREDNISOLONE [Concomitant]
     Active Substance: METHYLPREDNISOLONE
     Dosage: 10MG
  33. DIVALPROEX SODIUM [Concomitant]
     Active Substance: DIVALPROEX SODIUM
  34. ONDANSETRON [Concomitant]
     Active Substance: ONDANSETRON
     Dosage: 4MG,OD
  35. ATORVASTATIN CALCIUM [Concomitant]
     Active Substance: ATORVASTATIN CALCIUM
  36. TRIMETHOPRIM [Concomitant]
     Active Substance: TRIMETHOPRIM
  37. METAMUCIL [Concomitant]
     Active Substance: PLANTAGO SEED
  38. OXYBUTYNIN CHLORIDE [Concomitant]
     Active Substance: OXYBUTYNIN CHLORIDE
  39. SOLIFENACIN SUCCINATE [Concomitant]
     Active Substance: SOLIFENACIN SUCCINATE
  40. MYRBETRIQ [Concomitant]
     Active Substance: MIRABEGRON
     Dosage: 50MG,24HR
  41. ASHLYNA [Concomitant]
     Active Substance: ETHINYL ESTRADIOL\LEVONORGESTREL
  42. UP+UP FIBER GUMMIES [Concomitant]
  43. DIGESTIVE ADVANTAGE PROBIOTIC [Concomitant]
  44. GAS-X [Concomitant]
     Active Substance: DIMETHICONE
  45. PREVACID [Concomitant]
     Active Substance: LANSOPRAZOLE
     Dosage: 15MG,24HR
  46. THICK IT 2 [Concomitant]
  47. DULOXETINE HYDROCHLORIDE [Concomitant]
     Active Substance: DULOXETINE HYDROCHLORIDE

REACTIONS (4)
  - Arthropod bite [Unknown]
  - Pain [Unknown]
  - Skin burning sensation [Unknown]
  - Pruritus [Unknown]

NARRATIVE: CASE EVENT DATE: 20220701
